FAERS Safety Report 19377419 (Version 1)
Quarter: 2021Q2

REPORT INFORMATION
  Report Type: Report from Study
  Country: FR (occurrence: FR)
  Receive Date: 20210604
  Receipt Date: 20210604
  Transmission Date: 20210717
  Serious: Yes (Disabling)
  Sender: FDA-Public Use
  Company Number: FR-TAKEDA-2021TUS034684

PATIENT
  Age: 63 Year
  Sex: Male

DRUGS (20)
  1. TEDUGLUTIDE [Suspect]
     Active Substance: TEDUGLUTIDE
     Dosage: 1.400 MILLIGRAM, 7 DOSES PER WEEK
     Route: 065
     Dates: start: 20210113
  2. TEDUGLUTIDE [Suspect]
     Active Substance: TEDUGLUTIDE
     Dosage: 3 MILLIGRAM, 7 DOSES PER WEEK
     Route: 065
     Dates: start: 20200506, end: 20210112
  3. TEDUGLUTIDE [Suspect]
     Active Substance: TEDUGLUTIDE
     Dosage: 1.400 MILLIGRAM, 7 DOSES PER WEEK
     Route: 065
     Dates: start: 20210113
  4. TEDUGLUTIDE [Suspect]
     Active Substance: TEDUGLUTIDE
     Dosage: 3 MILLIGRAM, 7 DOSES PER WEEK
     Route: 065
     Dates: start: 20200506, end: 20210112
  5. TEDUGLUTIDE [Suspect]
     Active Substance: TEDUGLUTIDE
     Dosage: 1.400 MILLIGRAM, 7 DOSES PER WEEK
     Route: 065
     Dates: start: 20210113
  6. TEDUGLUTIDE [Suspect]
     Active Substance: TEDUGLUTIDE
     Dosage: 1.400 MILLIGRAM, 7 DOSES PER WEEK
     Route: 065
     Dates: start: 20210113
  7. TEDUGLUTIDE [Suspect]
     Active Substance: TEDUGLUTIDE
     Indication: PRODUCT USED FOR UNKNOWN INDICATION
     Dosage: 1.430 MILLIGRAM, 7 DOSES PER WEEK
     Route: 065
     Dates: start: 20191107, end: 20191210
  8. CHOLURSO [Concomitant]
     Active Substance: URSODIOL
     Indication: HEPATIC CIRRHOSIS
     Dosage: 500 MILLIGRAM, TID
     Route: 048
  9. TEDUGLUTIDE [Suspect]
     Active Substance: TEDUGLUTIDE
     Indication: PRODUCT USED FOR UNKNOWN INDICATION
     Dosage: 1.430 MILLIGRAM, 7 DOSES PER WEEK
     Route: 065
     Dates: start: 20191107, end: 20191210
  10. TEDUGLUTIDE [Suspect]
     Active Substance: TEDUGLUTIDE
     Dosage: 2 MILLIGRAM, 7 DOSES PER WEEK
     Route: 065
     Dates: start: 20191211, end: 20200505
  11. TEDUGLUTIDE [Suspect]
     Active Substance: TEDUGLUTIDE
     Dosage: 3 MILLIGRAM, 7 DOSES PER WEEK
     Route: 065
     Dates: start: 20200506, end: 20210112
  12. NEOMERCAZOLE [Concomitant]
     Active Substance: CARBIMAZOLE
     Indication: HYPERTHYROIDISM
     Dosage: 10 MICROGRAM, QD
     Route: 065
     Dates: end: 20191008
  13. ACLASTA [Concomitant]
     Active Substance: ZOLEDRONIC ACID
     Indication: OSTEOPOROSIS
     Dosage: 5 MILLIGRAM
     Route: 042
     Dates: start: 20190208
  14. NEOMERCAZOLE [Concomitant]
     Active Substance: CARBIMAZOLE
     Dosage: 10 MICROGRAM, TID
     Route: 065
     Dates: start: 20191009
  15. TEDUGLUTIDE [Suspect]
     Active Substance: TEDUGLUTIDE
     Indication: PRODUCT USED FOR UNKNOWN INDICATION
     Dosage: 1.430 MILLIGRAM, 7 DOSES PER WEEK
     Route: 065
     Dates: start: 20191107, end: 20191210
  16. TEDUGLUTIDE [Suspect]
     Active Substance: TEDUGLUTIDE
     Dosage: 2 MILLIGRAM, 7 DOSES PER WEEK
     Route: 065
     Dates: start: 20191211, end: 20200505
  17. TEDUGLUTIDE [Suspect]
     Active Substance: TEDUGLUTIDE
     Dosage: 2 MILLIGRAM, 7 DOSES PER WEEK
     Route: 065
     Dates: start: 20191211, end: 20200505
  18. TEDUGLUTIDE [Suspect]
     Active Substance: TEDUGLUTIDE
     Indication: PRODUCT USED FOR UNKNOWN INDICATION
     Dosage: 1.430 MILLIGRAM, 7 DOSES PER WEEK
     Route: 065
     Dates: start: 20191107, end: 20191210
  19. TEDUGLUTIDE [Suspect]
     Active Substance: TEDUGLUTIDE
     Dosage: 2 MILLIGRAM, 7 DOSES PER WEEK
     Route: 065
     Dates: start: 20191211, end: 20200505
  20. TEDUGLUTIDE [Suspect]
     Active Substance: TEDUGLUTIDE
     Dosage: 3 MILLIGRAM, 7 DOSES PER WEEK
     Route: 065
     Dates: start: 20200506, end: 20210112

REACTIONS (1)
  - Pancreatic cyst [Not Recovered/Not Resolved]

NARRATIVE: CASE EVENT DATE: 20191202
